FAERS Safety Report 17339087 (Version 1)
Quarter: 2020Q1

REPORT INFORMATION
  Report Type: Spontaneous
  Country: US (occurrence: US)
  Receive Date: 20200129
  Receipt Date: 20200129
  Transmission Date: 20200409
  Serious: No
  Sender: FDA-Public Use
  Company Number: US-SA-2020SA022860

PATIENT
  Sex: Female

DRUGS (1)
  1. ZANTAC [Suspect]
     Active Substance: RANITIDINE HYDROCHLORIDE
     Dosage: IN THE MORNING PEPCID BEFORE AND AFTER DINNER EVERYDAY FOR LAST TRIMESTER

REACTIONS (1)
  - Exposure during pregnancy [Unknown]
